FAERS Safety Report 20452315 (Version 3)
Quarter: 2022Q1

REPORT INFORMATION
  Report Type: Spontaneous
  Country: US (occurrence: US)
  Receive Date: 20220210
  Receipt Date: 20220224
  Transmission Date: 20220423
  Serious: Yes (Hospitalization, Other)
  Sender: FDA-Public Use
  Company Number: US-Blueprint Medicines Corporation-SP-US-2022-000316

PATIENT
  Age: 61 Year
  Sex: Male

DRUGS (2)
  1. AYVAKIT [Suspect]
     Active Substance: AVAPRITINIB
     Indication: Systemic mastocytosis
     Route: 048
     Dates: start: 20220115
  2. AYVAKIT [Suspect]
     Active Substance: AVAPRITINIB
     Indication: Acute myelomonocytic leukaemia
     Route: 048
     Dates: start: 20220127

REACTIONS (9)
  - Pneumonia [Not Recovered/Not Resolved]
  - Leukaemia [Not Recovered/Not Resolved]
  - Hypersomnia [Unknown]
  - Feeling abnormal [Unknown]
  - Asthenia [Unknown]
  - Swelling [Not Recovered/Not Resolved]
  - Decreased appetite [Not Recovered/Not Resolved]
  - Dyspnoea [Not Recovered/Not Resolved]
  - Off label use [Unknown]

NARRATIVE: CASE EVENT DATE: 20220115
